FAERS Safety Report 13540560 (Version 2)
Quarter: 2017Q2

REPORT INFORMATION
  Report Type: Spontaneous
  Country: GB (occurrence: GB)
  Receive Date: 20170512
  Receipt Date: 20170606
  Transmission Date: 20170830
  Serious: Yes (Disabling, Other)
  Sender: FDA-Public Use
  Company Number: GB-PFIZER INC-2017205413

PATIENT
  Age: 45 Year
  Sex: Male

DRUGS (1)
  1. PREGABALIN. [Suspect]
     Active Substance: PREGABALIN
     Indication: ANXIETY
     Dosage: 150 MG, UNK
     Route: 048

REACTIONS (2)
  - Drug withdrawal syndrome [Recovered/Resolved with Sequelae]
  - Drug titration error [Unknown]

NARRATIVE: CASE EVENT DATE: 201403
